FAERS Safety Report 5664648-9 (Version None)
Quarter: 2008Q1

REPORT INFORMATION
  Report Type: 
  Country: None (occurrence: None)
  Receive Date: 20080314
  Receipt Date: 20070927
  Transmission Date: 20080703
  Serious: Yes (Other)
  Sender: FDA-Public Use
  Company Number: ES-WYE-H03079308

PATIENT
  Age: 86 Year
  Sex: Female

DRUGS (3)
  1. ANAGASTRA [Suspect]
     Route: 048
     Dates: start: 20070611
  2. FUROSEMIDE [Suspect]
     Route: 048
     Dates: start: 20070625
  3. ALPRAZOLAM [Suspect]
     Indication: ANXIETY
     Route: 048
     Dates: start: 20070410

REACTIONS (1)
  - PARANOIA [None]
